FAERS Safety Report 4925294-5 (Version None)
Quarter: 2006Q1

REPORT INFORMATION
  Report Type: 
  Country: None (occurrence: None)
  Receive Date: 20060228
  Receipt Date: 20060208
  Transmission Date: 20060701
  Serious: Yes (Hospitalization)
  Sender: FDA-Public Use
  Company Number: JP-JPN-A200600511

PATIENT
  Age: 40 Year
  Sex: Female
  Weight: 46 kg

DRUGS (2)
  1. PAXIL [Suspect]
     Indication: PANIC DISORDER
     Dosage: 20MG PER DAY
     Route: 048
     Dates: start: 20060201, end: 20060201
  2. PAXIL [Suspect]
     Dosage: 10MG PER DAY
     Route: 048
     Dates: start: 20060202, end: 20060202

REACTIONS (11)
  - ASTHENIA [None]
  - CONVULSION [None]
  - DYSSTASIA [None]
  - FEELING ABNORMAL [None]
  - HYPERVENTILATION [None]
  - HYPOAESTHESIA [None]
  - HYPOKALAEMIA [None]
  - MALAISE [None]
  - MYOCLONUS [None]
  - THIRST [None]
  - TREMOR [None]
